FAERS Safety Report 9408388 (Version 1)
Quarter: 2013Q3

REPORT INFORMATION
  Report Type: Spontaneous
  Country: US (occurrence: US)
  Receive Date: 20130718
  Receipt Date: 20130718
  Transmission Date: 20140515
  Serious: No
  Sender: FDA-Public Use
  Company Number: US-009507513-1307USA009456

PATIENT
  Sex: Male

DRUGS (2)
  1. MIRALAX [Suspect]
     Indication: COLITIS ISCHAEMIC
     Dosage: 8.5 G, UNKNOWN
     Route: 048
     Dates: start: 201306, end: 20130707
  2. MIRALAX [Suspect]
     Indication: MEDICAL OBSERVATION

REACTIONS (3)
  - Dry mouth [Unknown]
  - Underdose [Unknown]
  - Off label use [Unknown]
